FAERS Safety Report 7412493-6 (Version None)
Quarter: 2011Q2

REPORT INFORMATION
  Report Type: 
  Country: None (occurrence: None)
  Receive Date: 20110408
  Receipt Date: 20110408
  Transmission Date: 20111010
  Serious: Yes (Hospitalization)
  Sender: FDA-Public Use
  Company Number: None

PATIENT
  Age: 54 Year
  Sex: Male
  Weight: 101.1521 kg

DRUGS (2)
  1. AVANDIA [Suspect]
  2. AVANDIA [Suspect]
     Indication: DIABETES MELLITUS
     Dosage: DAILY TWICE
     Dates: start: 20060116, end: 20100519

REACTIONS (3)
  - LIVER DISORDER [None]
  - GASTRIC OPERATION [None]
  - CEREBROVASCULAR ACCIDENT [None]
